FAERS Safety Report 23662218 (Version 4)
Quarter: 2024Q3

REPORT INFORMATION
  Report Type: Report from Study
  Country: JP (occurrence: None)
  Receive Date: 20240322
  Receipt Date: 20240809
  Transmission Date: 20241016
  Serious: No
  Sender: ASTRAZENECA
  Company Number: 2024A066768

PATIENT
  Age: 4747 Day
  Sex: Male

DRUGS (1)
  1. KOSELUGO [Suspect]
     Active Substance: SELUMETINIB
     Indication: Neurofibroma
     Dosage: NUMBER OF SEPARATE DOSAGES UNKNOWN, GENERALLY ON EMPTY STOMACH
     Route: 048
     Dates: start: 20230131

REACTIONS (3)
  - Eczema asteatotic [Not Recovered/Not Resolved]
  - Eczema [Not Recovered/Not Resolved]
  - Cheilitis [Unknown]

NARRATIVE: CASE EVENT DATE: 20230131
